FAERS Safety Report 4803919-2 (Version None)
Quarter: 2005Q3

REPORT INFORMATION
  Report Type: 
  Country: None (occurrence: None)
  Receive Date: 20050920
  Receipt Date: 20050607
  Transmission Date: 20060218
  Serious: No
  Sender: FDA-Public Use
  Company Number: US-YAMANOUCHI-YPA20050294

PATIENT
  Age: 77 Year
  Sex: Female
  Weight: 86.1834 kg

DRUGS (14)
  1. VESICARE [Suspect]
     Indication: HYPERTONIC BLADDER
     Dosage: 5 MG BID PO
     Route: 048
     Dates: start: 20050601
  2. ARTHROTEC [Concomitant]
  3. NORVASC [Concomitant]
  4. ATENOLOL [Concomitant]
  5. CLONIDINE [Concomitant]
  6. LISINOPRIL [Concomitant]
  7. GLUCOPHAGE [Concomitant]
  8. ACTOS [Concomitant]
  9. GLUCOTROL [Concomitant]
  10. TRICOR [Concomitant]
  11. ZOCOR [Concomitant]
  12. IMIPRAMINE [Concomitant]
  13. OXYBUTYNIN [Concomitant]
  14. ASPIRIN [Concomitant]

REACTIONS (2)
  - DRY MOUTH [None]
  - MUSCLE SPASMS [None]
